FAERS Safety Report 17640987 (Version 1)
Quarter: 2020Q2

REPORT INFORMATION
  Report Type: Spontaneous
  Country: US (occurrence: US)
  Receive Date: 20200408
  Receipt Date: 20200408
  Transmission Date: 20200713
  Serious: No
  Sender: FDA-Public Use
  Company Number: US-BAUSCH-BL-2020-007295

PATIENT
  Age: 59 Year
  Sex: Female

DRUGS (2)
  1. TRETINOIN CREAM 0.05% [Suspect]
     Active Substance: TRETINOIN
     Indication: SOLAR LENTIGO
     Dosage: APPROXIMATELY 7 TO 8 DAYS AGO (AM), AS DIRECTED
     Route: 061
     Dates: start: 202002, end: 202003
  2. TRETINOIN CREAM 0.05% [Suspect]
     Active Substance: TRETINOIN
     Indication: PRODUCT USE IN UNAPPROVED INDICATION
     Dosage: ONCE A WEEK FOR THE TIME PERIOD, DOSE DECREASED
     Route: 061
     Dates: start: 202003

REACTIONS (9)
  - Expired product administered [Unknown]
  - Skin burning sensation [Recovering/Resolving]
  - Pruritus [Recovering/Resolving]
  - Product use in unapproved indication [Unknown]
  - Dry skin [Not Recovered/Not Resolved]
  - Sensitive skin [Not Recovered/Not Resolved]
  - Erythema [Recovering/Resolving]
  - Skin irritation [Recovering/Resolving]
  - Skin exfoliation [Not Recovered/Not Resolved]

NARRATIVE: CASE EVENT DATE: 2020
